FAERS Safety Report 5120237-6 (Version None)
Quarter: 2006Q4

REPORT INFORMATION
  Report Type: 
  Country: None (occurrence: None)
  Receive Date: 20061004
  Receipt Date: 20060922
  Transmission Date: 20070319
  Serious: Yes (Death)
  Sender: FDA-Public Use
  Company Number: ES-AMGEN-UK194827

PATIENT
  Age: 46 Year
  Sex: Female

DRUGS (6)
  1. NEULASTA [Suspect]
     Indication: CHEMOTHERAPY
     Route: 065
  2. CYCLOPHOSPHAMIDE [Suspect]
     Route: 065
  3. DOXORUBICIN HYDROCHLORIDE [Suspect]
     Route: 065
  4. VINCRISTINE [Suspect]
     Route: 065
  5. PREDNISONE [Suspect]
     Route: 065
  6. RITUXIMAB [Suspect]
     Route: 065

REACTIONS (2)
  - FEBRILE NEUTROPENIA [None]
  - PANCYTOPENIA [None]
